FAERS Safety Report 8869232 (Version 1)
Quarter: 2012Q4

REPORT INFORMATION
  Report Type: Spontaneous
  Country: US (occurrence: None)
  Receive Date: 20121025
  Receipt Date: 20121025
  Transmission Date: 20130627
  Serious: No
  Sender: FDA-Public Use
  Company Number: None

PATIENT
  Sex: Male

DRUGS (15)
  1. REVLIMID 5 MG CELGENE [Suspect]
     Indication: MULTIPLE MYELOMA
     Dosage: 21/28 days
     Route: 048
     Dates: start: 201208
  2. DEXAMETHASONE [Concomitant]
  3. ACYCLOVIR [Concomitant]
  4. VERAPAMIL [Concomitant]
  5. FUROSEMIDE [Concomitant]
  6. GLIPIZIDE [Concomitant]
  7. FINASTERIDE [Concomitant]
  8. TERAZOSIN [Concomitant]
  9. ALLOPURINOL [Concomitant]
  10. POTASSIUM [Concomitant]
  11. NORCO [Concomitant]
  12. ZOLPIDEM [Concomitant]
  13. MECLIZINE [Concomitant]
  14. VITAMIN B12 [Concomitant]
  15. VITAMIN D [Concomitant]

REACTIONS (1)
  - Fatigue [None]
